FAERS Safety Report 8712747 (Version 3)
Quarter: 2012Q4

REPORT INFORMATION
  Report Type: 
  Country: BR (occurrence: BR)
  Receive Date: 20120808
  Receipt Date: 20120921
  Transmission Date: 20130627
  Serious: Yes (Hospitalization, Other)
  Sender: FDA-Public Use
  Company Number: BR-JNJFOC-20120801677

PATIENT
  Age: 36 Year
  Sex: Male

DRUGS (5)
  1. INVEGA SUSTENNA [Suspect]
     Indication: SCHIZOPHRENIA
     Route: 030
     Dates: start: 20120726, end: 201208
  2. UNSPECIFIED INGREDIENT [Suspect]
     Indication: DRUG ABUSE
     Route: 065
  3. ALCOHOL [Suspect]
     Indication: ALCOHOL ABUSE
     Route: 048
  4. UNKNOWN MEDICATION [Suspect]
     Indication: PNEUMONIA
     Route: 065
  5. COCAINE [Suspect]
     Indication: DRUG ABUSE
     Route: 065

REACTIONS (7)
  - Abnormal behaviour [Not Recovered/Not Resolved]
  - Eye movement disorder [Unknown]
  - Pneumonia [Unknown]
  - Paraesthesia [Unknown]
  - Asthenia [Unknown]
  - Alcohol use [None]
  - Drug abuse [None]
